FAERS Safety Report 7906673-0 (Version None)
Quarter: 2011Q4

REPORT INFORMATION
  Report Type: 
  Country: None (occurrence: None)
  Receive Date: 20111110
  Receipt Date: 20111031
  Transmission Date: 20120403
  Serious: Yes (Other)
  Sender: FDA-Public Use
  Company Number: GB-JNJFOC-20110908040

PATIENT
  Sex: Female

DRUGS (2)
  1. ABIRATERONE ACETATE [Suspect]
     Indication: BREAST CANCER METASTATIC
     Dosage: CYCLE 1 ADMINISTERED ON A CONTINUOUS 28 DAY CYCLE
     Route: 048
     Dates: start: 20110721, end: 20110730
  2. ABIRATERONE ACETATE [Suspect]
     Route: 048

REACTIONS (2)
  - ERYTHEMA MULTIFORME [None]
  - RASH [None]
